FAERS Safety Report 5013468-7 (Version None)
Quarter: 2006Q2

REPORT INFORMATION
  Report Type: 
  Country: None (occurrence: None)
  Receive Date: 20060530
  Receipt Date: 20060516
  Transmission Date: 20061013
  Serious: Yes (Congenital Anomaly)
  Sender: FDA-Public Use
  Company Number: 2006AC00962

PATIENT
  Age: 30 Month
  Sex: Male

DRUGS (2)
  1. PULMICORT [Suspect]
     Indication: ASTHMA
     Route: 064
     Dates: start: 20030101
  2. TERBASMIN TURBUHALER [Suspect]
     Indication: ASTHMA
     Route: 064
     Dates: start: 20030101

REACTIONS (4)
  - CONGENITAL ANOMALY [None]
  - CRYPTORCHISM [None]
  - DRUG EXPOSURE DURING PREGNANCY [None]
  - REPRODUCTIVE TRACT HYPOPLASIA, MALE [None]
